FAERS Safety Report 17242450 (Version 1)
Quarter: 2020Q1

REPORT INFORMATION
  Report Type: Spontaneous
  Country: US (occurrence: US)
  Receive Date: 20200106
  Receipt Date: 20200106
  Transmission Date: 20200409
  Serious: Yes (Hospitalization)
  Sender: FDA-Public Use
  Company Number: None

PATIENT
  Age: 39 Year
  Sex: Female

DRUGS (2)
  1. LIDOCAINE 2% [Suspect]
     Active Substance: LIDOCAINE
  2. LIDOCAINE 1% [Suspect]
     Active Substance: LIDOCAINE
     Dosage: ?          OTHER FREQUENCY:TISSUE INJECTIONS;OTHER ROUTE:SOFT TISSUE INJECTION?
     Dates: start: 20191210, end: 20191210

REACTIONS (7)
  - Hypertension [None]
  - Tachycardia [None]
  - Toxicity to various agents [None]
  - Muscle twitching [None]
  - Hypoaesthesia oral [None]
  - Paraesthesia oral [None]
  - Muscle spasms [None]

NARRATIVE: CASE EVENT DATE: 20191210
